FAERS Safety Report 4930848-6 (Version None)
Quarter: 2006Q1

REPORT INFORMATION
  Report Type: 
  Country: None (occurrence: None)
  Receive Date: 20060302
  Receipt Date: 20050126
  Transmission Date: 20060701
  Serious: Yes (Hospitalization)
  Sender: FDA-Public Use
  Company Number: FR-BOEHRINGER INGELHEIM PHARMACEUTICALS, INC.-2005-FF-00051FF

PATIENT
  Sex: Female
  Weight: 70 kg

DRUGS (5)
  1. TIPRANAVIR + RITONAVIR CO-ADMIN [Suspect]
     Indication: HIV INFECTION
     Dosage: TPV/RTV 500/200 MG B.I.D.
     Route: 048
     Dates: start: 20041215, end: 20050201
  2. FUZEON [Suspect]
     Indication: HIV INFECTION
     Route: 058
     Dates: start: 20041215, end: 20050201
  3. TRIZIVIR [Concomitant]
     Indication: HIV INFECTION
     Dosage: 2 TABLETS DAILY
     Route: 048
     Dates: start: 20041215, end: 20050105
  4. COMBIVIR [Concomitant]
     Indication: HIV INFECTION
     Route: 048
     Dates: start: 20050105, end: 20050201
  5. VIREAD [Concomitant]
     Route: 048
     Dates: start: 20050105, end: 20050201

REACTIONS (12)
  - CHOLESTASIS [None]
  - COUGH [None]
  - CYTOLYTIC HEPATITIS [None]
  - DEPRESSION [None]
  - DIARRHOEA [None]
  - DRUG TOXICITY [None]
  - NAUSEA [None]
  - OESOPHAGEAL CANDIDIASIS [None]
  - PULMONARY EMBOLISM [None]
  - PYREXIA [None]
  - THROMBOPHLEBITIS [None]
  - VOMITING [None]
